FAERS Safety Report 5469876-3 (Version None)
Quarter: 2007Q3

REPORT INFORMATION
  Report Type: 
  Country: None (occurrence: None)
  Receive Date: 20070927
  Receipt Date: 20070913
  Transmission Date: 20080115
  Serious: Yes (Hospitalization, Other)
  Sender: FDA-Public Use
  Company Number: JP-ELI_LILLY_AND_COMPANY-JP200709003452

PATIENT
  Age: 72 Year
  Sex: Female
  Weight: 39 kg

DRUGS (13)
  1. PEMETREXED [Suspect]
     Indication: PLEURAL MESOTHELIOMA MALIGNANT
     Dosage: 500 MG/M2, UNKNOWN
     Route: 042
     Dates: start: 20070529, end: 20070529
  2. PEMETREXED [Suspect]
     Dosage: 500 MG/M2, UNKNOWN
     Route: 042
     Dates: start: 20070703, end: 20070703
  3. PANVITAN [Concomitant]
     Dosage: 0.5 MG, DAILY (1/D)
     Route: 048
     Dates: start: 20070515, end: 20070801
  4. METHYCOBAL [Concomitant]
     Dosage: 1 MG, DAILY (1/D)
     Route: 030
     Dates: start: 20070518, end: 20070518
  5. METHYCOBAL [Concomitant]
     Dosage: 1 MG, DAILY (1/D)
     Route: 030
     Dates: start: 20070720, end: 20070720
  6. FERROMIA [Concomitant]
     Indication: IRON DEFICIENCY ANAEMIA
     Dosage: 100 MG, DAILY (1/D)
     Route: 048
     Dates: end: 20070801
  7. URSO 250 [Concomitant]
     Indication: CHOLELITHIASIS
     Dosage: 150 MG, DAILY (1/D)
     Route: 048
     Dates: end: 20070801
  8. COSPANON [Concomitant]
     Indication: CHOLELITHIASIS
     Dosage: 240 MG, DAILY (1/D)
     Route: 048
     Dates: end: 20070801
  9. ALFAROL [Concomitant]
     Indication: OSTEOPOROSIS
     Dosage: 0.25 MG, DAILY (1/D)
     Route: 048
     Dates: end: 20070801
  10. DECADRON [Concomitant]
     Indication: PROPHYLAXIS
     Dosage: 32 MG, UNKNOWN
     Route: 042
     Dates: start: 20070529, end: 20070705
  11. KYTRIL [Concomitant]
     Indication: PROPHYLAXIS
     Dosage: 6 MG, UNKNOWN
     Route: 042
     Dates: start: 20070529, end: 20070704
  12. CISPLATIN [Suspect]
     Indication: PLEURAL MESOTHELIOMA MALIGNANT
     Dosage: 75 MG/M2, OTHER
     Route: 042
     Dates: start: 20070529, end: 20070529
  13. CISPLATIN [Suspect]
     Dosage: 75 MG/M2, OTHER
     Route: 042
     Dates: start: 20070703, end: 20070703

REACTIONS (13)
  - AMYLOIDOSIS [None]
  - BLOOD ALBUMIN DECREASED [None]
  - DECREASED APPETITE [None]
  - DIARRHOEA [None]
  - FEBRILE NEUTROPENIA [None]
  - GASTRIC ULCER [None]
  - HAEMATOCRIT DECREASED [None]
  - HAEMOGLOBIN DECREASED [None]
  - OEDEMA [None]
  - PLATELET COUNT DECREASED [None]
  - RED BLOOD CELL COUNT DECREASED [None]
  - RENAL DISORDER [None]
  - WHITE BLOOD CELL COUNT DECREASED [None]
